FAERS Safety Report 10917864 (Version 1)
Quarter: 2015Q1

REPORT INFORMATION
  Report Type: Report from Study
  Country: AR (occurrence: AR)
  Receive Date: 20150316
  Receipt Date: 20150316
  Transmission Date: 20150721
  Serious: Yes (Death, Hospitalization)
  Sender: FDA-Public Use
  Company Number: AR-BRISTOL-MYERS SQUIBB COMPANY-21282314

PATIENT
  Age: 51 Year
  Sex: Female

DRUGS (1)
  1. IXABEPILONE [Suspect]
     Active Substance: IXABEPILONE
     Indication: BREAST CANCER METASTATIC
     Dosage: 45 MG, Q3WK
     Route: 065
     Dates: start: 20140306

REACTIONS (2)
  - Lung neoplasm [Fatal]
  - Thrombosis [Fatal]

NARRATIVE: CASE EVENT DATE: 20140729
